FAERS Safety Report 4459203-2 (Version None)
Quarter: 2004Q3

REPORT INFORMATION
  Report Type: 
  Country: None (occurrence: None)
  Receive Date: 20040927
  Receipt Date: 20040921
  Transmission Date: 20050211
  Serious: Yes (Hospitalization)
  Sender: FDA-Public Use
  Company Number: US-BRISTOL-MYERS SQUIBB COMPANY-12708459

PATIENT
  Age: 55 Year
  Sex: Male

DRUGS (1)
  1. CETUXIMAB [Suspect]
     Indication: COLORECTAL CANCER METASTATIC
     Dosage: TOTAL DAILY DOSE REPORTED AS ^PT UP TO 325 MG/M2^. DOSE INTERRUPTED DUE TO EVENT.
     Route: 042
     Dates: start: 20040720

REACTIONS (1)
  - DEEP VEIN THROMBOSIS [None]
